FAERS Safety Report 25565369 (Version 1)
Quarter: 2025Q3

REPORT INFORMATION
  Report Type: Spontaneous
  Country: US (occurrence: None)
  Receive Date: 20250716
  Receipt Date: 20250716
  Transmission Date: 20251021
  Serious: Yes (Hospitalization)
  Sender: FDA-CTU
  Company Number: None

PATIENT
  Age: 68 Year
  Sex: Male
  Weight: 81.7 kg

DRUGS (2)
  1. LOMUSTINE [Suspect]
     Active Substance: LOMUSTINE
     Dates: end: 20250604
  2. TEMOZOLOMIDE [Suspect]
     Active Substance: TEMOZOLOMIDE
     Dates: end: 20250630

REACTIONS (3)
  - White blood cell count decreased [None]
  - Platelet count decreased [None]
  - Febrile neutropenia [None]

NARRATIVE: CASE EVENT DATE: 20250707
